FAERS Safety Report 15215269 (Version 1)
Quarter: 2018Q3

REPORT INFORMATION
  Report Type: Spontaneous
  Country: IT (occurrence: IT)
  Receive Date: 20180730
  Receipt Date: 20180730
  Transmission Date: 20181010
  Serious: Yes (Life-Threatening, Other)
  Sender: FDA-Public Use
  Company Number: IT-GLAXOSMITHKLINE-IT2018131832

PATIENT
  Age: 76 Year
  Sex: Female

DRUGS (6)
  1. ATORVASTATIN [Suspect]
     Active Substance: ATORVASTATIN
     Indication: PRODUCT USED FOR UNKNOWN INDICATION
     Dosage: NON?THERAPEUTIC DOSAGE ADMINISTERED
     Route: 065
  2. FLUOXETINE [Suspect]
     Active Substance: FLUOXETINE HYDROCHLORIDE
     Indication: PRODUCT USED FOR UNKNOWN INDICATION
     Dosage: NON?THERAPEUTIC DOSAGE ADMINISTERED
     Route: 016
  3. NEBIVOLOL. [Suspect]
     Active Substance: NEBIVOLOL
     Indication: PRODUCT USED FOR UNKNOWN INDICATION
     Dosage: NON?THERAPEUTIC DOSAGE ADMINISTERED
     Route: 065
  4. NORTRIPTYLINE [Suspect]
     Active Substance: NORTRIPTYLINE
     Indication: PRODUCT USED FOR UNKNOWN INDICATION
     Dosage: NON?THERAPEUTIC DOSAGE ADMINISTERED
     Route: 016
  5. TRIMIPRAMINE [Suspect]
     Active Substance: TRIMIPRAMINE
     Indication: PRODUCT USED FOR UNKNOWN INDICATION
     Dosage: NON?THERAPEUTIC DOSAGE ADMINISTERED
     Route: 016
  6. LAMOTRIGINE. [Suspect]
     Active Substance: LAMOTRIGINE
     Indication: PRODUCT USED FOR UNKNOWN INDICATION
     Dosage: NON?THERAPEUTIC DOSAGE ADMINISTERED
     Route: 065

REACTIONS (6)
  - Hypotension [Recovering/Resolving]
  - Miosis [Recovering/Resolving]
  - Suicide attempt [Unknown]
  - Traumatic coma [Recovering/Resolving]
  - Incorrect dosage administered [Unknown]
  - Prescription drug used without a prescription [Unknown]
